FAERS Safety Report 12336653 (Version 1)
Quarter: 2016Q2

REPORT INFORMATION
  Report Type: Spontaneous
  Country: US (occurrence: US)
  Receive Date: 20160505
  Receipt Date: 20160505
  Transmission Date: 20160815
  Serious: No
  Sender: FDA-Public Use
  Company Number: US-TEVA-651885ACC

PATIENT
  Sex: Female
  Weight: 72.64 kg

DRUGS (1)
  1. PARAGARD T 380A [Suspect]
     Active Substance: COPPER
     Indication: CONTRACEPTION
     Dates: end: 20160318

REACTIONS (6)
  - Pelvic pain [Unknown]
  - Flank pain [Unknown]
  - Amenorrhoea [Unknown]
  - Abdominal pain [Unknown]
  - Dyspnoea exertional [Unknown]
  - Musculoskeletal stiffness [Unknown]
